FAERS Safety Report 8205808-2 (Version None)
Quarter: 2012Q1

REPORT INFORMATION
  Report Type: 
  Country: None (occurrence: None)
  Receive Date: 20120313
  Receipt Date: 20120301
  Transmission Date: 20120608
  Serious: Yes (Hospitalization)
  Sender: FDA-Public Use
  Company Number: US-ELI_LILLY_AND_COMPANY-US201201002621

PATIENT
  Sex: Female
  Weight: 48.798 kg

DRUGS (1)
  1. FORTEO [Suspect]
     Dosage: 20 UG, QD
     Route: 058

REACTIONS (3)
  - ATRIAL FIBRILLATION [None]
  - PNEUMONIA [None]
  - SEPSIS [None]
